FAERS Safety Report 6258017-0 (Version None)
Quarter: 2009Q3

REPORT INFORMATION
  Report Type: 
  Country: None (occurrence: None)
  Receive Date: 20090702
  Receipt Date: 20090622
  Transmission Date: 20100115
  Serious: Yes (Hospitalization, Other)
  Sender: FDA-Public Use
  Company Number: 2009AP002377

PATIENT
  Age: 32 Year
  Sex: Female

DRUGS (3)
  1. MYCOPHENOLATE MOFETIL [Suspect]
     Indication: RENAL TRANSPLANT
  2. PREDNISOLONE [Suspect]
     Indication: RENAL TRANSPLANT
  3. TACROLIMUS [Suspect]
     Indication: RENAL TRANSPLANT

REACTIONS (7)
  - CHOLECYSTITIS INFECTIVE [None]
  - CYTOMEGALOVIRUS VIRAEMIA [None]
  - GALLBLADDER PERFORATION [None]
  - HAEMOBILIA [None]
  - HYPOTENSION [None]
  - MUCOSAL ULCERATION [None]
  - TACHYCARDIA [None]
